FAERS Safety Report 8911897 (Version 4)
Quarter: 2013Q2

REPORT INFORMATION
  Report Type: Report from Study
  Country: CA (occurrence: CA)
  Receive Date: 20121116
  Receipt Date: 20130528
  Transmission Date: 20140414
  Serious: Yes (Hospitalization, Other)
  Sender: FDA-Public Use
  Company Number: CA-JNJFOC-20121104191

PATIENT
  Age: 30 Year
  Sex: Female
  Weight: 88 kg

DRUGS (13)
  1. REMICADE [Suspect]
     Indication: COLITIS ULCERATIVE
     Route: 042
  2. REMICADE [Suspect]
     Indication: COLITIS ULCERATIVE
     Route: 042
     Dates: start: 20130517
  3. REMICADE [Suspect]
     Indication: COLITIS ULCERATIVE
     Route: 042
     Dates: start: 20100120, end: 20120927
  4. PANTOLOC [Concomitant]
     Dosage: MG
     Route: 065
  5. IMURAN [Concomitant]
     Route: 065
  6. IBUPROFEN [Concomitant]
     Dosage: MG
     Route: 065
  7. FERROUS SULPHATE [Concomitant]
     Dosage: MG
     Route: 065
  8. CALCIUM [Concomitant]
     Dosage: MG
     Route: 065
  9. MULTIVITES [Concomitant]
     Dosage: MG
     Route: 065
  10. SEROQUEL [Concomitant]
     Dosage: MG
     Route: 065
  11. TYLENOL [Concomitant]
     Dosage: MG
     Route: 065
  12. GRAVOL [Concomitant]
     Dosage: MG
     Route: 065
  13. TUBERCULOSIS MEDICATIONS [Concomitant]
     Route: 065

REACTIONS (1)
  - Disseminated tuberculosis [Recovered/Resolved]
